FAERS Safety Report 22302347 (Version 2)
Quarter: 2023Q2

REPORT INFORMATION
  Report Type: Report from Study
  Country: JP (occurrence: JP)
  Receive Date: 20230510
  Receipt Date: 20230619
  Transmission Date: 20230722
  Serious: Yes (Other)
  Sender: FDA-Public Use
  Company Number: JP-UCBSA-2023023043

PATIENT

DRUGS (2)
  1. ROTIGOTINE [Suspect]
     Active Substance: ROTIGOTINE
     Indication: Parkinson^s disease
     Dosage: UNK
  2. LEVODOPA [Suspect]
     Active Substance: LEVODOPA
     Indication: Parkinson^s disease
     Dosage: UNK

REACTIONS (1)
  - Post procedural complication [Unknown]
